FAERS Safety Report 14156067 (Version 1)
Quarter: 2017Q4

REPORT INFORMATION
  Report Type: Spontaneous
  Country: RU (occurrence: RU)
  Receive Date: 20171103
  Receipt Date: 20171103
  Transmission Date: 20180321
  Serious: Yes (Hospitalization, Other)
  Sender: FDA-Public Use
  Company Number: RU-ASTRAZENECA-2017SF10866

PATIENT
  Age: 71 Year
  Sex: Male
  Weight: 85 kg

DRUGS (10)
  1. BRILINTA [Suspect]
     Active Substance: TICAGRELOR
     Indication: STENT PLACEMENT
     Route: 048
     Dates: start: 20170607
  2. BISOPROLOL [Concomitant]
     Active Substance: BISOPROLOL
  3. PERINDOPRIL [Concomitant]
     Active Substance: PERINDOPRIL
  4. APIXABAN [Concomitant]
     Active Substance: APIXABAN
  5. CRESTOR [Suspect]
     Active Substance: ROSUVASTATIN CALCIUM
     Indication: HYPERCHOLESTEROLAEMIA
     Route: 048
     Dates: start: 2013
  6. LIPRIMAR [Concomitant]
     Active Substance: ATORVASTATIN CALCIUM
  7. CARDIOMAGNYL [Concomitant]
     Active Substance: ASPIRIN\MAGNESIUM HYDROXIDE
  8. VEROSPIRON [Concomitant]
     Active Substance: SPIRONOLACTONE
  9. OMNIC [Concomitant]
     Active Substance: TAMSULOSIN HYDROCHLORIDE
  10. OMEZ [Concomitant]
     Active Substance: OMEPRAZOLE

REACTIONS (8)
  - Thrombosis [Unknown]
  - Hernia [Recovered/Resolved]
  - Altered state of consciousness [Not Recovered/Not Resolved]
  - Gingival bleeding [Unknown]
  - Headache [Not Recovered/Not Resolved]
  - Epistaxis [Recovered/Resolved]
  - Dyspnoea [Not Recovered/Not Resolved]
  - Myocardial infarction [Recovered/Resolved]

NARRATIVE: CASE EVENT DATE: 2016
